FAERS Safety Report 19928120 (Version 2)
Quarter: 2021Q4

REPORT INFORMATION
  Report Type: Report from Study
  Country: GB (occurrence: GB)
  Receive Date: 20211007
  Receipt Date: 20211103
  Transmission Date: 20220303
  Serious: Yes (Other)
  Sender: FDA-Public Use
  Company Number: GB-NOVARTISPH-NVSC2021GB218198

PATIENT
  Age: 8 Year
  Sex: Male
  Weight: 18.1 kg

DRUGS (2)
  1. TRAMETINIB [Suspect]
     Active Substance: TRAMETINIB
     Indication: BRAF gene mutation
     Dosage: 0.5 MG (10 ML IS EQUAL TO 0.5 MG)
     Route: 048
     Dates: start: 20210129, end: 20210504
  2. COTRIMOXAZOLE [Concomitant]
     Active Substance: SULFAMETHOXAZOLE\TRIMETHOPRIM
     Indication: Pneumonia
     Dosage: 360 MG, BID ON SATURDAYS AND SUNDAYS
     Route: 048
     Dates: end: 202106

REACTIONS (2)
  - Tumour necrosis [Recovering/Resolving]
  - Ejection fraction decreased [Recovered/Resolved]

NARRATIVE: CASE EVENT DATE: 20210429
